FAERS Safety Report 21847570 (Version 1)
Quarter: 2023Q1

REPORT INFORMATION
  Report Type: Spontaneous
  Country: US (occurrence: US)
  Receive Date: 20230111
  Receipt Date: 20230111
  Transmission Date: 20230418
  Serious: No
  Sender: FDA-Public Use
  Company Number: US-SA-SAC20230110000360

PATIENT
  Sex: Male

DRUGS (1)
  1. FABRAZYME [Suspect]
     Active Substance: AGALSIDASE BETA
     Dosage: 65 MG QOW
     Route: 042

REACTIONS (1)
  - COVID-19 [Unknown]

NARRATIVE: CASE EVENT DATE: 20220101
